FAERS Safety Report 16114009 (Version 1)
Quarter: 2019Q1

REPORT INFORMATION
  Report Type: Spontaneous
  Country: US (occurrence: US)
  Receive Date: 20190325
  Receipt Date: 20190325
  Transmission Date: 20190418
  Serious: No
  Sender: FDA-Public Use
  Company Number: US-ALLERGAN-1827552US

PATIENT
  Age: 61 Year
  Sex: Female

DRUGS (1)
  1. LATISSE [Suspect]
     Active Substance: BIMATOPROST
     Indication: SKIN WRINKLING
     Dosage: 2 GTT, QHS
     Route: 061
     Dates: start: 20180519, end: 20180522

REACTIONS (2)
  - Madarosis [Unknown]
  - Product administered at inappropriate site [Unknown]
